FAERS Safety Report 16898935 (Version 1)
Quarter: 2019Q4

REPORT INFORMATION
  Report Type: Spontaneous
  Country: US (occurrence: US)
  Receive Date: 20191009
  Receipt Date: 20191009
  Transmission Date: 20200122
  Serious: Yes (Other)
  Sender: FDA-Public Use
  Company Number: US-PFIZER INC-2019431178

PATIENT
  Age: 69 Year
  Sex: Female
  Weight: 83.1 kg

DRUGS (1)
  1. XELJANZ XR [Suspect]
     Active Substance: TOFACITINIB CITRATE
     Indication: RHEUMATOID ARTHRITIS
     Dosage: 11 MG, 1X/DAY
     Route: 048
     Dates: start: 201907, end: 20190928

REACTIONS (10)
  - Cystitis escherichia [Not Recovered/Not Resolved]
  - Dysphagia [Unknown]
  - Oropharyngeal pain [Unknown]
  - Urinary tract infection [Not Recovered/Not Resolved]
  - Condition aggravated [Unknown]
  - Chromaturia [Unknown]
  - Pollakiuria [Unknown]
  - Swelling [Unknown]
  - Muscular weakness [Unknown]
  - Drug hypersensitivity [Unknown]
